FAERS Safety Report 7920595-0 (Version None)
Quarter: 2011Q4

REPORT INFORMATION
  Report Type: 
  Country: None (occurrence: None)
  Receive Date: 20111117
  Receipt Date: 20111115
  Transmission Date: 20120403
  Serious: Yes (Death, Hospitalization, Other)
  Sender: FDA-Public Use
  Company Number: PHHY2011CA53319

PATIENT
  Sex: Female

DRUGS (10)
  1. PERINDOPRIL ERBUMINE [Concomitant]
  2. VITAMIN D [Concomitant]
  3. EFFEXOR [Concomitant]
  4. PANTOPRAZOLE [Concomitant]
  5. ZOLEDRONOC ACID [Suspect]
     Indication: OSTEOPOROSIS
     Dosage: UNK
     Route: 042
     Dates: start: 20100709
  6. DABIGATRAN [Concomitant]
  7. LASIX [Concomitant]
  8. MEZIM [Concomitant]
  9. LIPITOR [Concomitant]
  10. ASPIRIN [Concomitant]

REACTIONS (8)
  - DEPRESSED LEVEL OF CONSCIOUSNESS [None]
  - ASTHENIA [None]
  - INFECTION [None]
  - PNEUMONIA [None]
  - CEREBROVASCULAR ACCIDENT [None]
  - FALL [None]
  - SUBDURAL HAEMATOMA [None]
  - HEAD INJURY [None]
